FAERS Safety Report 16154500 (Version 2)
Quarter: 2019Q2

REPORT INFORMATION
  Report Type: Spontaneous
  Country: US (occurrence: US)
  Receive Date: 20190403
  Receipt Date: 20190412
  Transmission Date: 20190711
  Serious: No
  Sender: FDA-Public Use
  Company Number: US-GLAXOSMITHKLINE-US2019058844

PATIENT
  Age: 60 Year
  Sex: Female

DRUGS (5)
  1. FLONASE [Suspect]
     Active Substance: FLUTICASONE PROPIONATE
     Indication: RHINORRHOEA
  2. FLONASE [Suspect]
     Active Substance: FLUTICASONE PROPIONATE
     Indication: EYE PRURITUS
  3. FLONASE [Suspect]
     Active Substance: FLUTICASONE PROPIONATE
     Indication: LACRIMATION INCREASED
  4. FLONASE [Suspect]
     Active Substance: FLUTICASONE PROPIONATE
     Indication: SNEEZING
  5. FLONASE [Suspect]
     Active Substance: FLUTICASONE PROPIONATE
     Indication: MULTIPLE ALLERGIES
     Dosage: UNK, BID
     Dates: start: 201902

REACTIONS (4)
  - Tongue blistering [Recovered/Resolved]
  - Adverse drug reaction [Unknown]
  - Inappropriate schedule of product administration [Unknown]
  - Glossodynia [Recovered/Resolved]
